FAERS Safety Report 17434795 (Version 1)
Quarter: 2020Q1

REPORT INFORMATION
  Report Type: Spontaneous
  Country: FR (occurrence: FR)
  Receive Date: 20200219
  Receipt Date: 20200219
  Transmission Date: 20200409
  Serious: Yes (Other)
  Sender: FDA-Public Use
  Company Number: FR-TEVA-2020-FR-1187940

PATIENT
  Sex: Female

DRUGS (1)
  1. CABERGOLINE TEVA 0.5 MG [Suspect]
     Active Substance: CABERGOLINE
     Dosage: STARTED TWO MONTHS EARLIER.
     Route: 065

REACTIONS (1)
  - Uterine haemorrhage [Recovered/Resolved]
